FAERS Safety Report 9390943 (Version 1)
Quarter: 2013Q3

REPORT INFORMATION
  Report Type: Spontaneous
  Country: US (occurrence: None)
  Receive Date: 20130705
  Receipt Date: 20130705
  Transmission Date: 20140515
  Serious: Yes (Disabling)
  Sender: FDA-Public Use
  Company Number: None

PATIENT
  Age: 61 Year
  Sex: Male
  Weight: 113.4 kg

DRUGS (10)
  1. VICTOZA [Suspect]
     Indication: DIABETES MELLITUS
     Dosage: STRENGTH:  18MG?QUANTITY:  ONE INJECTION?FREQUENCY:  ONCE DAILY?HOW:  INJECTION?THERAPY START DATE: APPR. 2019
     Dates: end: 201301
  2. METFORMIN [Concomitant]
  3. GLIMEPIRIDE [Concomitant]
  4. LOVASTIN [Concomitant]
  5. LOSARTAN CREON [Concomitant]
  6. BYSTOLIE [Concomitant]
  7. FISH OIL [Concomitant]
  8. VIAMIN D [Concomitant]
  9. VIAMIN B-12 [Concomitant]
  10. VSL #3 PROBIOTIC [Concomitant]

REACTIONS (1)
  - Pancreatic carcinoma [None]
